FAERS Safety Report 6126171-7 (Version None)
Quarter: 2009Q1

REPORT INFORMATION
  Report Type: 
  Country: None (occurrence: None)
  Receive Date: 20090320
  Receipt Date: 20090312
  Transmission Date: 20090719
  Serious: Yes (Other)
  Sender: FDA-Public Use
  Company Number: B0555217A

PATIENT
  Age: 58 Year
  Sex: Female

DRUGS (6)
  1. TYKERB [Suspect]
     Indication: BREAST CANCER
     Route: 065
  2. XELODA [Suspect]
     Indication: BREAST CANCER
     Route: 065
  3. GLICLAZIDE [Concomitant]
     Dosage: 80MG PER DAY
     Route: 065
  4. ATORVASTATIN [Concomitant]
     Dosage: 80MG AT NIGHT
     Route: 065
  5. METFORMIN HCL [Concomitant]
     Dosage: 1G EIGHT TIMES PER DAY
     Route: 065
  6. WARFARIN SODIUM [Concomitant]
     Indication: AORTIC VALVE REPLACEMENT
     Route: 065

REACTIONS (1)
  - NEUTROPENIA [None]
